FAERS Safety Report 4335082-9 (Version None)
Quarter: 2004Q2

REPORT INFORMATION
  Report Type: 
  Country: None (occurrence: None)
  Receive Date: 20040405
  Receipt Date: 20040323
  Transmission Date: 20050107
  Serious: Yes (Hospitalization)
  Sender: FDA-Public Use
  Company Number: K200400426

PATIENT
  Age: 41 Year
  Sex: Male

DRUGS (2)
  1. ALTACE [Suspect]
     Indication: HYPERTENSION
     Dosage: TWO 2.5 MG TABLETS DAILY, ORAL
     Route: 048
     Dates: end: 20040301
  2. TRUSOPT [Concomitant]

REACTIONS (2)
  - PULMONARY EOSINOPHILIA [None]
  - SPLENOMEGALY [None]
